FAERS Safety Report 17750254 (Version 1)
Quarter: 2020Q2

REPORT INFORMATION
  Report Type: Spontaneous
  Country: US (occurrence: US)
  Receive Date: 20200505
  Receipt Date: 20200505
  Transmission Date: 20200714
  Serious: No
  Sender: FDA-Public Use
  Company Number: None

PATIENT
  Sex: Female

DRUGS (1)
  1. BOTOX [Suspect]
     Active Substance: ONABOTULINUMTOXINA
     Indication: MIGRAINE WITH AURA
     Dosage: ?          OTHER STRENGTH:200 U/VL;OTHER FREQUENCY:EVERY 90 DAYS;?
     Route: 030
     Dates: start: 20180919

REACTIONS (3)
  - Therapy cessation [None]
  - Migraine [None]
  - Facial paralysis [None]
